FAERS Safety Report 13652764 (Version 1)
Quarter: 2017Q2

REPORT INFORMATION
  Report Type: Spontaneous
  Country: US (occurrence: US)
  Receive Date: 20170614
  Receipt Date: 20170614
  Transmission Date: 20170830
  Serious: No
  Sender: FDA-Public Use
  Company Number: US-ROCHE-1213419

PATIENT
  Age: 59 Year
  Sex: Male

DRUGS (1)
  1. XELODA [Suspect]
     Active Substance: CAPECITABINE
     Indication: COLORECTAL CANCER METASTATIC
     Dosage: 2000 MG IN MORNING AND 2000 MG IN EVENING
     Route: 048

REACTIONS (3)
  - Constipation [Recovering/Resolving]
  - Epigastric discomfort [Recovering/Resolving]
  - Abdominal pain upper [Recovering/Resolving]
